FAERS Safety Report 9822117 (Version 8)
Quarter: 2015Q2

REPORT INFORMATION
  Report Type: Report from Study
  Country: NL (occurrence: NL)
  Receive Date: 20140116
  Receipt Date: 20150528
  Transmission Date: 20150821
  Serious: Yes (Other)
  Sender: FDA-Public Use
  Company Number: PHHY2014NL001381

PATIENT
  Age: 41 Year
  Sex: Female

DRUGS (17)
  1. SOM230 [Suspect]
     Active Substance: PASIREOTIDE
     Indication: HEADACHE
     Dosage: 600 UG (1-1-1/2)
     Route: 058
     Dates: start: 20120628
  2. SOM230 [Suspect]
     Active Substance: PASIREOTIDE
     Indication: ACROMEGALY
     Dosage: 40 MG, ONCE FOR 28 DAYS
     Route: 030
     Dates: start: 20120910
  3. SOM230 [Suspect]
     Active Substance: PASIREOTIDE
     Dosage: 40 MG, UNK
     Route: 030
     Dates: start: 20150304
  4. PEGVISOMANT [Suspect]
     Active Substance: PEGVISOMANT
     Indication: ACROMEGALY
     Route: 065
  5. SOM230 [Suspect]
     Active Substance: PASIREOTIDE
     Indication: ACROMEGALY
     Dosage: 600 UG, BID
     Route: 058
     Dates: start: 20120525
  6. SOM230 [Suspect]
     Active Substance: PASIREOTIDE
     Dosage: 60 MG, ONCE FOR 28 DAYS
     Route: 030
     Dates: start: 20121105
  7. SOM230 [Suspect]
     Active Substance: PASIREOTIDE
     Dosage: 40 MG, ONCE FOR 28 DAYS
     Route: 030
     Dates: start: 20130423
  8. SOM230 [Suspect]
     Active Substance: PASIREOTIDE
     Dosage: 60 MG, UNK
     Route: 030
     Dates: start: 20140403
  9. HYDROCORTISONE. [Concomitant]
     Active Substance: HYDROCORTISONE
     Indication: PRODUCT USED FOR UNKNOWN INDICATION
     Dosage: 30 MG, UNK
     Route: 065
     Dates: start: 20101222
  10. TOLBUTAMIDE. [Concomitant]
     Active Substance: TOLBUTAMIDE
     Dosage: 1000 MG, UNK
     Dates: start: 20120817
  11. SOM230 [Suspect]
     Active Substance: PASIREOTIDE
     Dosage: 60 MG, QMO
     Route: 030
     Dates: start: 20130726
  12. TRAMADOL [Concomitant]
     Active Substance: TRAMADOL
     Indication: PRODUCT USED FOR UNKNOWN INDICATION
     Dosage: 100 MG, UNK
     Route: 065
  13. TOLBUTAMIDE. [Concomitant]
     Active Substance: TOLBUTAMIDE
     Indication: PRODUCT USED FOR UNKNOWN INDICATION
     Dosage: 2000 MG, UNK
     Route: 065
     Dates: start: 20120701, end: 20120817
  14. AMITRIPTYLINE [Concomitant]
     Active Substance: AMITRIPTYLINE
     Indication: PRODUCT USED FOR UNKNOWN INDICATION
     Dosage: 50 MG
     Route: 065
  15. SOMATOSTATIN [Suspect]
     Active Substance: SOMATOSTATIN
     Indication: ACROMEGALY
     Route: 065
  16. THYROXIN [Concomitant]
     Active Substance: LEVOTHYROXINE
     Indication: PRODUCT USED FOR UNKNOWN INDICATION
     Dosage: 50 UG, UNK
     Route: 065
     Dates: start: 20111125
  17. CALCIUM + VITAMIN D3 [Concomitant]
     Indication: PRODUCT USED FOR UNKNOWN INDICATION
     Dosage: 1 DF, UNK
     Route: 065
     Dates: start: 20101202

REACTIONS (3)
  - Sleep disorder [Unknown]
  - Diabetes mellitus [Not Recovered/Not Resolved]
  - Hypertension [Unknown]

NARRATIVE: CASE EVENT DATE: 20120601
